FAERS Safety Report 7536703-X (Version None)
Quarter: 2011Q2

REPORT INFORMATION
  Report Type: 
  Country: None (occurrence: None)
  Receive Date: 20110609
  Receipt Date: 20110524
  Transmission Date: 20111010
  Serious: Yes (Congenital Anomaly)
  Sender: FDA-Public Use
  Company Number: A0930797A

PATIENT
  Sex: Female

DRUGS (1)
  1. PAXIL CR [Suspect]
     Route: 064

REACTIONS (2)
  - CLEFT LIP AND PALATE [None]
  - DRUG EXPOSURE DURING PREGNANCY [None]
